FAERS Safety Report 4831273-9 (Version None)
Quarter: 2005Q4

REPORT INFORMATION
  Report Type: 
  Country: None (occurrence: None)
  Receive Date: 20051114
  Receipt Date: 20051101
  Transmission Date: 20060501
  Serious: Yes (Hospitalization)
  Sender: FDA-Public Use
  Company Number: DE_050816789

PATIENT
  Age: 51 Year
  Sex: Female
  Weight: 76 kg

DRUGS (4)
  1. CYMBALTA [Suspect]
     Indication: FIBROMYALGIA
     Dosage: 30 MG DAY
     Dates: start: 20050825, end: 20050825
  2. ADVAIR DISKUS 100/50 [Concomitant]
  3. ERYTHROMYCIN [Concomitant]
  4. ESTRADOT (ESTRADIOL) [Concomitant]

REACTIONS (17)
  - ANXIETY [None]
  - BALANCE DISORDER [None]
  - C-REACTIVE PROTEIN INCREASED [None]
  - CHEST DISCOMFORT [None]
  - CHEST PAIN [None]
  - DIPLOPIA [None]
  - DISTURBANCE IN ATTENTION [None]
  - DYSPEPSIA [None]
  - HEADACHE [None]
  - HEART RATE INCREASED [None]
  - HYPERTENSION [None]
  - NAUSEA [None]
  - PSYCHOMOTOR HYPERACTIVITY [None]
  - THROAT TIGHTNESS [None]
  - TINNITUS [None]
  - VERTIGO [None]
  - VOMITING [None]
